FAERS Safety Report 7215569-1 (Version None)
Quarter: 2011Q1

REPORT INFORMATION
  Report Type: 
  Country: None (occurrence: None)
  Receive Date: 20110107
  Receipt Date: 20110103
  Transmission Date: 20110831
  Serious: Yes (Other)
  Sender: FDA-Public Use
  Company Number: BR-ROCHE-751342

PATIENT
  Sex: Female
  Weight: 60 kg

DRUGS (10)
  1. TOCILIZUMAB [Suspect]
     Route: 042
     Dates: start: 20100420, end: 20100420
  2. TOCILIZUMAB [Suspect]
     Route: 042
     Dates: start: 20100620, end: 20100620
  3. SEDILAX [Concomitant]
     Indication: RHEUMATOID ARTHRITIS
  4. TOCILIZUMAB [Suspect]
     Indication: RHEUMATOID ARTHRITIS
     Route: 042
     Dates: start: 20100315, end: 20100315
  5. TOCILIZUMAB [Suspect]
     Route: 042
     Dates: start: 20100920, end: 20100920
  6. METICORTEN [Concomitant]
     Dosage: TAKEN AT NIGHT
  7. TOCILIZUMAB [Suspect]
     Route: 042
     Dates: start: 20100521, end: 20100521
  8. PREDNISONE [Concomitant]
  9. TOCILIZUMAB [Suspect]
     Route: 042
     Dates: start: 20101223, end: 20101223
  10. NOVALGINA [Concomitant]
     Indication: PAIN

REACTIONS (9)
  - WEIGHT INCREASED [None]
  - OEDEMA PERIPHERAL [None]
  - NODULE [None]
  - PAIN IN EXTREMITY [None]
  - RESPIRATORY FAILURE [None]
  - METRORRHAGIA [None]
  - ANAEMIA [None]
  - ERYTHEMA [None]
  - BREAST DISORDER [None]
